FAERS Safety Report 21947136 (Version 1)
Quarter: 2023Q1

REPORT INFORMATION
  Report Type: Spontaneous
  Country: US (occurrence: US)
  Receive Date: 20230202
  Receipt Date: 20230202
  Transmission Date: 20230418
  Serious: No
  Sender: FDA-Public Use
  Company Number: US-BRISTOL-MYERS SQUIBB COMPANY-2023-011958

PATIENT
  Age: 67 Year
  Sex: Female

DRUGS (5)
  1. SPRYCEL [Suspect]
     Active Substance: DASATINIB
     Indication: Chronic myeloid leukaemia
     Dosage: FREQ: DAILY
     Route: 048
     Dates: start: 202212
  2. SPRYCEL [Suspect]
     Active Substance: DASATINIB
     Dosage: FREQ: DAILY
     Route: 048
     Dates: start: 20220909
  3. SPRYCEL [Suspect]
     Active Substance: DASATINIB
     Dosage: FREQ: DAILY
     Route: 048
     Dates: start: 202211
  4. ATORVASTATIN [Concomitant]
     Active Substance: ATORVASTATIN
     Indication: Product used for unknown indication
  5. DULOXETINE [Concomitant]
     Active Substance: DULOXETINE
     Indication: Anxiety

REACTIONS (5)
  - Vomiting [Recovered/Resolved]
  - Diarrhoea [Recovered/Resolved]
  - Alopecia [Unknown]
  - Hiatus hernia [Unknown]
  - Acquired oesophageal web [Unknown]
